FAERS Safety Report 9815010 (Version 2)
Quarter: 2014Q1

REPORT INFORMATION
  Report Type: Report from Study
  Country: US (occurrence: US)
  Receive Date: 20140114
  Receipt Date: 20140122
  Transmission Date: 20141002
  Serious: Yes (Hospitalization, Other)
  Sender: FDA-Public Use
  Company Number: US-ROCHE-1328008

PATIENT
  Sex: Female

DRUGS (11)
  1. LUCENTIS [Suspect]
     Indication: DIABETIC RETINAL OEDEMA
     Dosage: OD
     Route: 050
     Dates: start: 201103
  2. LUCENTIS [Suspect]
     Dosage: OU
     Route: 050
  3. LUCENTIS [Suspect]
     Dosage: OU AND OS ALTERNATING
     Route: 050
  4. AVASTIN [Suspect]
     Indication: DIABETIC RETINAL OEDEMA
     Route: 065
  5. TROPICAMIDE [Concomitant]
     Route: 065
  6. PHENYLEPHRINE [Concomitant]
     Route: 065
  7. PROPARACAINE [Concomitant]
     Route: 061
  8. LIDOCAINE [Concomitant]
     Route: 057
  9. COUMADIN [Concomitant]
  10. ASPIRIN [Concomitant]
     Route: 065
     Dates: start: 20120105
  11. METFORMIN HYDROCHLORIDE [Concomitant]
     Route: 065
     Dates: start: 20120105

REACTIONS (23)
  - Cerebrovascular accident [Unknown]
  - Macular oedema [Unknown]
  - Retinal oedema [Unknown]
  - Retinal exudates [Unknown]
  - Vitreous detachment [Unknown]
  - Vitreous floaters [Unknown]
  - Visual acuity reduced [Unknown]
  - Cataract [Unknown]
  - Pupil fixed [Unknown]
  - Vision blurred [Unknown]
  - Maculopathy [Unknown]
  - Aneurysm [Unknown]
  - Retinal vascular disorder [Unknown]
  - Retinal haemorrhage [Unknown]
  - Off label use [Unknown]
  - Therapeutic response decreased [Unknown]
  - Paraesthesia [Unknown]
  - Muscular weakness [Unknown]
  - Gait disturbance [Unknown]
  - Macular ischaemia [Unknown]
  - Diabetic retinopathy [Unknown]
  - Diabetes mellitus inadequate control [Unknown]
  - Overdose [Unknown]
